FAERS Safety Report 12349635 (Version 1)
Quarter: 2016Q2

REPORT INFORMATION
  Report Type: Report from Study
  Country: US (occurrence: US)
  Receive Date: 20160510
  Receipt Date: 20160510
  Transmission Date: 20160815
  Serious: Yes (Death)
  Sender: FDA-Public Use
  Company Number: US-ROCHE-1748164

PATIENT
  Sex: Male
  Weight: 97.98 kg

DRUGS (14)
  1. AUGMENTIN [Concomitant]
     Active Substance: AMOXICILLIN\CLAVULANATE POTASSIUM
     Dosage: 875MG/125MG TABLET?ONE TABLET BY MOUTH TWICE DAILY
     Route: 048
  2. PHENERGAN W/ CODEINE [Concomitant]
     Active Substance: CODEINE PHOSPHATE\PROMETHAZINE HYDROCHLORIDE
     Dosage: 6.25MG/10MG/5ML
     Route: 048
  3. LODIEN [Concomitant]
     Route: 048
  4. FOLIC ACID. [Concomitant]
     Active Substance: FOLIC ACID
     Route: 048
  5. VITAMIN B12 [Concomitant]
     Active Substance: CYANOCOBALAMIN
     Route: 048
  6. DIFLUCAN [Concomitant]
     Active Substance: FLUCONAZOLE
     Dosage: ONE TABLET BY MOUTH DAILY
     Route: 048
  7. PREDNISONE. [Concomitant]
     Active Substance: PREDNISONE
     Route: 048
  8. SYMBICORT [Concomitant]
     Active Substance: BUDESONIDE\FORMOTEROL FUMARATE DIHYDRATE
     Dosage: 160-4.5MCG/ACT
     Route: 048
  9. LEVAQUIN [Concomitant]
     Active Substance: LEVOFLOXACIN
     Dosage: DAILY 5 00MG
     Route: 048
  10. FLONASE (UNITED STATES) [Concomitant]
     Dosage: NASAL SUSPENSION
     Route: 065
  11. PROAIR HFA [Concomitant]
     Active Substance: ALBUTEROL SULFATE
     Dosage: 2 PUFFS BY MOUTH EVERY 4 HOURS AS NEEDED.
     Route: 048
  12. PREDNISONE. [Concomitant]
     Active Substance: PREDNISONE
     Dosage: 3 TABLETS BY MOUTH DAILY
     Route: 048
  13. PULMICORT FLEXHALER [Concomitant]
     Active Substance: BUDESONIDE
     Dosage: 2 PUFFS BY MOUTH TWICE DAILY
     Route: 048
  14. RITUXAN [Suspect]
     Active Substance: RITUXIMAB
     Indication: PRODUCT USED FOR UNKNOWN INDICATION
     Route: 065

REACTIONS (3)
  - Pneumonia [Fatal]
  - Acute respiratory failure [Fatal]
  - Cardiac arrest [Fatal]
